FAERS Safety Report 20418881 (Version 2)
Quarter: 2022Q1

REPORT INFORMATION
  Report Type: Report from Study
  Country: US (occurrence: US)
  Receive Date: 20220202
  Receipt Date: 20220317
  Transmission Date: 20220423
  Serious: No
  Sender: FDA-Public Use
  Company Number: US-SUN PHARMACEUTICAL INDUSTRIES LTD-2022R1-325159

PATIENT
  Age: 61 Year
  Sex: Female

DRUGS (2)
  1. BOSENTAN [Suspect]
     Active Substance: BOSENTAN
     Indication: Ulcer
     Dosage: 125 MILLIGRAM, BID
     Route: 048
     Dates: start: 202101
  2. BOSENTAN [Suspect]
     Active Substance: BOSENTAN
     Indication: Raynaud^s phenomenon
     Dosage: 125 MILLIGRAM, BID
     Route: 048
     Dates: start: 202202

REACTIONS (3)
  - Off label use [Unknown]
  - Raynaud^s phenomenon [Unknown]
  - Drug ineffective [Unknown]

NARRATIVE: CASE EVENT DATE: 20220121
